FAERS Safety Report 4804001-0 (Version None)
Quarter: 2005Q3

REPORT INFORMATION
  Report Type: 
  Country: None (occurrence: None)
  Receive Date: 20050920
  Receipt Date: 20050803
  Transmission Date: 20060218
  Serious: No
  Sender: FDA-Public Use
  Company Number: US-YAMANOUCHI-YPA20050400

PATIENT
  Age: 76 Year
  Sex: Male

DRUGS (3)
  1. VESICARE [Suspect]
     Indication: HYPERTONIC BLADDER
     Dosage: 10 MG PO
     Route: 048
     Dates: start: 20050301
  2. UROXATRAL [Concomitant]
  3. REMEDEINE [Concomitant]

REACTIONS (1)
  - HEPATIC ENZYME INCREASED [None]
